FAERS Safety Report 15323667 (Version 2)
Quarter: 2018Q4

REPORT INFORMATION
  Report Type: Spontaneous
  Country: US (occurrence: US)
  Receive Date: 20180827
  Receipt Date: 20181011
  Transmission Date: 20190204
  Serious: Yes (Other)
  Sender: FDA-Public Use
  Company Number: US-PRINSTON PHARMACEUTICAL INC.-2018PRN00876

PATIENT
  Sex: Male

DRUGS (2)
  1. VALSARTAN. [Suspect]
     Active Substance: VALSARTAN
     Indication: HYPERTENSION
     Dosage: 80 MG, 1X/DAY
     Route: 048
     Dates: start: 2015
  2. UNSPECIFIED PRODUCT [Suspect]
     Active Substance: UNSPECIFIED INGREDIENT
     Indication: HYPERTENSION
     Dosage: 80 MG, 1X/DAY
     Route: 048
     Dates: start: 2015

REACTIONS (5)
  - Neuropathy peripheral [Not Recovered/Not Resolved]
  - Leukaemia [Unknown]
  - Plasma cell myeloma [Unknown]
  - Gastrointestinal disorder [Not Recovered/Not Resolved]
  - Choledochal cyst [Not Recovered/Not Resolved]
